FAERS Safety Report 4541052-8 (Version None)
Quarter: 2004Q4

REPORT INFORMATION
  Report Type: 
  Country: None (occurrence: None)
  Receive Date: 20041228
  Receipt Date: 20041210
  Transmission Date: 20050328
  Serious: Yes (Death, Hospitalization)
  Sender: FDA-Public Use
  Company Number: DSA_25499_2004

PATIENT
  Age: 74 Year
  Sex: Female

DRUGS (18)
  1. ENALAPRIL MALEATE AND HYDROCHLOROTHIAZIDE [Suspect]
     Indication: CORONARY ARTERY DISEASE
     Dosage: 1 TAB QD PO
     Route: 048
     Dates: end: 20020331
  2. SORTIS ^GOEDECKE^ [Suspect]
     Indication: CORONARY ARTERY DISEASE
     Dosage: 20 MG Q DAY UNK
     Route: 065
     Dates: end: 20020331
  3. CYCLOPHOSPHAMIDE [Suspect]
     Indication: NON-HODGKIN'S LYMPHOMA
     Dosage: DF UNK IV
     Route: 042
     Dates: start: 20020312, end: 20020312
  4. CYCLOPHOSPHAMIDE [Suspect]
     Indication: NON-HODGKIN'S LYMPHOMA
     Dosage: DF UNK IV
     Route: 042
     Dates: start: 20020116, end: 20020116
  5. CYCLOPHOSPHAMIDE [Suspect]
     Indication: NON-HODGKIN'S LYMPHOMA
     Dosage: DF UNK IV
     Route: 042
     Dates: start: 20020212, end: 20020212
  6. DOXORUBICIN HYDROCHLORIDE [Suspect]
     Indication: NON-HODGKIN'S LYMPHOMA
     Dosage: DF UNK IV
     Route: 042
     Dates: start: 20020312, end: 20020312
  7. DOXORUBICIN HYDROCHLORIDE [Suspect]
     Indication: NON-HODGKIN'S LYMPHOMA
     Dosage: DF UNK IV
     Route: 042
     Dates: start: 20020116, end: 20020116
  8. DOXORUBICIN HYDROCHLORIDE [Suspect]
     Indication: NON-HODGKIN'S LYMPHOMA
     Dosage: DF UNK IV
     Route: 042
     Dates: start: 20020212, end: 20020212
  9. VINCRISTINE SULFATE [Suspect]
     Indication: NON-HODGKIN'S LYMPHOMA
     Dosage: DF UNK IV
     Route: 042
     Dates: start: 20020312, end: 20020312
  10. VINCRISTINE SULFATE [Suspect]
     Indication: NON-HODGKIN'S LYMPHOMA
     Dosage: DF UNK IV
     Route: 042
     Dates: start: 20020116, end: 20020116
  11. VINCRISTINE SULFATE [Suspect]
     Indication: NON-HODGKIN'S LYMPHOMA
     Dosage: DF UNK IV
     Route: 042
     Dates: start: 20020212, end: 20020212
  12. AVANDIA [Suspect]
     Dosage: DF UNK PO
     Route: 048
     Dates: start: 20020217, end: 20020310
  13. NORVASC [Concomitant]
  14. SEROPRAM [Concomitant]
  15. PREMARIN [Concomitant]
  16. BELOC ZOK [Concomitant]
  17. MARCOUMAR [Concomitant]
  18. PREDNISOLONE [Concomitant]

REACTIONS (16)
  - ATRIAL FIBRILLATION [None]
  - BLOOD CREATININE INCREASED [None]
  - BLOOD LACTIC ACID INCREASED [None]
  - BLOOD PH DECREASED [None]
  - BLOOD UREA INCREASED [None]
  - BUNDLE BRANCH BLOCK LEFT [None]
  - CONVULSION [None]
  - GENERAL PHYSICAL HEALTH DETERIORATION [None]
  - HEPATIC FAILURE [None]
  - HEPATIC NECROSIS [None]
  - INFLAMMATION [None]
  - PULMONARY OEDEMA [None]
  - RENAL DISORDER [None]
  - SHOCK [None]
  - SYNCOPE [None]
  - TACHYCARDIA [None]
